FAERS Safety Report 6481439-X (Version None)
Quarter: 2009Q4

REPORT INFORMATION
  Report Type: 
  Country: None (occurrence: None)
  Receive Date: 20091208
  Receipt Date: 20090325
  Transmission Date: 20100525
  Serious: No
  Sender: FDA-Public Use
  Company Number: US-AMGEN-KDL338713

PATIENT
  Sex: Female
  Weight: 70.8 kg

DRUGS (10)
  1. ENBREL [Suspect]
     Indication: RHEUMATOID ARTHRITIS
     Route: 058
     Dates: start: 20070501
  2. METHOTREXATE [Concomitant]
     Route: 048
  3. FOLIC ACID [Concomitant]
  4. PERCOCET [Concomitant]
  5. SIMVASTATIN [Concomitant]
  6. MELOXICAM [Concomitant]
  7. PAROXETINE HCL [Concomitant]
  8. DALMANE [Concomitant]
  9. ASPIRIN [Concomitant]
  10. ADVIL [Concomitant]

REACTIONS (7)
  - ARTHRALGIA [None]
  - JOINT DESTRUCTION [None]
  - JOINT EFFUSION [None]
  - JOINT SWELLING [None]
  - MUSCULAR WEAKNESS [None]
  - RHEUMATOID ARTHRITIS [None]
  - STRESS [None]
